FAERS Safety Report 8579900-7 (Version None)
Quarter: 2012Q3

REPORT INFORMATION
  Report Type: 
  Country: None (occurrence: None)
  Receive Date: 20120808
  Receipt Date: 20120807
  Transmission Date: 20120928
  Serious: Yes (Hospitalization)
  Sender: FDA-Public Use
  Company Number: PHHY2012TW067769

PATIENT
  Age: 40 Year
  Sex: Male

DRUGS (7)
  1. ZOTEPINE [Interacting]
     Dosage: 200 MG, DAILY
  2. VALPROIC ACID [Suspect]
     Dosage: 1000 MG, DAILY
  3. ZOTEPINE [Interacting]
     Dosage: 350 MG, DAILY
  4. ZOTEPINE [Interacting]
     Dosage: 250 MG, DAILY
  5. ZOTEPINE [Interacting]
     Dosage: 350 MG, DAILY
  6. ARIPIPRAZOLE [Concomitant]
     Dosage: 20 MG, DAILY
  7. QUETIAPINE [Concomitant]
     Dosage: 750 MG, DAILY

REACTIONS (11)
  - TACHYCARDIA [None]
  - BLOOD CREATININE INCREASED [None]
  - CONFUSIONAL STATE [None]
  - DISTURBANCE IN ATTENTION [None]
  - ABNORMAL BEHAVIOUR [None]
  - DELIRIUM [None]
  - DECREASED VENTRICULAR PRELOAD [None]
  - DISORIENTATION [None]
  - HALLUCINATION, VISUAL [None]
  - MEMORY IMPAIRMENT [None]
  - CONSCIOUSNESS FLUCTUATING [None]
